FAERS Safety Report 17763711 (Version 1)
Quarter: 2020Q2

REPORT INFORMATION
  Report Type: Spontaneous
  Country: FR (occurrence: FR)
  Receive Date: 20200510
  Receipt Date: 20200510
  Transmission Date: 20200714
  Serious: Yes (Hospitalization)
  Sender: FDA-Public Use
  Company Number: FR-CADILA HEALTHCARE LIMITED-FR-ZYDUS-023941

PATIENT

DRUGS (9)
  1. PANTOPRAZOLE [Concomitant]
     Active Substance: PANTOPRAZOLE
     Route: 048
     Dates: start: 20180713
  2. VISIPAQUE [Concomitant]
     Active Substance: IODIXANOL
     Route: 042
     Dates: start: 20180718
  3. AGRASTAT [Suspect]
     Active Substance: TIROFIBAN HYDROCHLORIDE
     Dates: start: 20160713
  4. ATENOLOL. [Suspect]
     Active Substance: ATENOLOL
     Indication: PRODUCT USED FOR UNKNOWN INDICATION
     Route: 048
     Dates: start: 20160713
  5. PROCORALAN [Suspect]
     Active Substance: IVABRADINE
     Route: 048
     Dates: start: 20180714
  6. ATORVASTATINE [Concomitant]
     Active Substance: ATORVASTATIN
     Route: 048
     Dates: start: 20180713, end: 20180719
  7. LOVENOX [Concomitant]
     Active Substance: ENOXAPARIN SODIUM
     Route: 058
     Dates: start: 20180718
  8. RAMIPRIL. [Concomitant]
     Active Substance: RAMIPRIL
     Route: 048
     Dates: start: 20180713, end: 20180719
  9. ACETYLSALICYLIC ACID [Concomitant]
     Active Substance: ASPIRIN
     Route: 048
     Dates: start: 20180713

REACTIONS (2)
  - Eosinophilia [Recovered/Resolved]
  - Rash pustular [Recovered/Resolved]

NARRATIVE: CASE EVENT DATE: 20160719
